FAERS Safety Report 6341412-9 (Version None)
Quarter: 2009Q3

REPORT INFORMATION
  Report Type: 
  Country: None (occurrence: None)
  Receive Date: 20090904
  Receipt Date: 20090826
  Transmission Date: 20100115
  Serious: No
  Sender: FDA-Public Use
  Company Number: US-ELI_LILLY_AND_COMPANY-US200908006348

PATIENT
  Age: 25 Year
  Sex: Female

DRUGS (6)
  1. CYMBALTA [Suspect]
     Dosage: 90 MG, UNKNOWN
     Route: 065
     Dates: start: 20090708, end: 20090809
  2. ROZEREM [Concomitant]
     Dosage: 8 MG, UNKNOWN
     Route: 065
  3. ADDERALL 10 [Concomitant]
     Dosage: 20 MG, UNKNOWN
     Route: 065
  4. KLONOPIN [Concomitant]
     Dosage: 1.5 MG, DAILY (1/D)
     Route: 065
  5. TRAZODONE [Concomitant]
     Dosage: 50 MG, UNKNOWN
     Route: 065
  6. RISPERDAL [Concomitant]
     Dosage: UNK, UNKNOWN
     Route: 065

REACTIONS (1)
  - ALANINE AMINOTRANSFERASE INCREASED [None]
